FAERS Safety Report 14973477 (Version 5)
Quarter: 2018Q4

REPORT INFORMATION
  Report Type: Spontaneous
  Country: JP (occurrence: JP)
  Receive Date: 20180605
  Receipt Date: 20181214
  Transmission Date: 20190204
  Serious: Yes (Life-Threatening, Other)
  Sender: FDA-Public Use
  Company Number: JP-PFIZER INC-2018000553

PATIENT
  Age: 13 Year
  Sex: Female
  Weight: 43 kg

DRUGS (12)
  1. RAPALIMUS [Suspect]
     Active Substance: SIROLIMUS
     Dosage: 1.0 MG, DAILY
     Route: 048
     Dates: start: 20170622, end: 20170919
  2. RAPALIMUS [Suspect]
     Active Substance: SIROLIMUS
     Dosage: 0.5 MG, DAILY
     Route: 048
     Dates: start: 20170920, end: 20171104
  3. FUROSEMIDE. [Concomitant]
     Active Substance: FUROSEMIDE
     Dosage: UNK
     Route: 048
     Dates: start: 20170213
  4. ALDACTONE A [Concomitant]
     Active Substance: SPIRONOLACTONE
     Dosage: UNK
     Route: 048
     Dates: start: 20170913
  5. BAKTAR [Concomitant]
     Active Substance: SULFAMETHOXAZOLE\TRIMETHOPRIM
     Dosage: UNK
     Route: 065
  6. PROPRANOLOL HYDROCHLORIDE. [Concomitant]
     Active Substance: PROPRANOLOL HYDROCHLORIDE
     Indication: LYMPHANGIOMA
     Dosage: UNK
     Route: 048
     Dates: start: 20170516, end: 20170615
  7. RAPALIMUS [Suspect]
     Active Substance: SIROLIMUS
     Indication: LYMPHANGIOMA
     Dosage: UNK
     Route: 048
     Dates: end: 2017
  8. RAPALIMUS [Suspect]
     Active Substance: SIROLIMUS
     Dosage: 1.5 MG, DAILY
     Route: 048
     Dates: start: 20170503, end: 20170519
  9. OCTREOTIDE. [Concomitant]
     Active Substance: OCTREOTIDE
     Indication: LYMPHANGIOMA
     Dosage: UNK
  10. RAPALIMUS [Suspect]
     Active Substance: SIROLIMUS
     Dosage: 1.0 MG, DAILY
     Route: 048
     Dates: start: 20170316, end: 20170502
  11. HACHIAZULE [Concomitant]
     Dosage: UNK
     Route: 049
  12. EPPIKAJUTSUTO [Concomitant]
     Indication: LYMPHANGIOMA
     Dosage: UNK
     Route: 048
     Dates: start: 20170619, end: 20170913

REACTIONS (11)
  - Vomiting [Recovered/Resolved]
  - Impaired healing [Recovered/Resolved]
  - Ascites [Not Recovered/Not Resolved]
  - Pleural effusion [Not Recovered/Not Resolved]
  - Hypogammaglobulinaemia [Recovered/Resolved]
  - Blood albumin decreased [Unknown]
  - Off label use [Unknown]
  - Sepsis [Recovered/Resolved]
  - Product use in unapproved indication [Unknown]
  - Stomatitis [Recovered/Resolved]
  - Hypoalbuminaemia [Recovered/Resolved]

NARRATIVE: CASE EVENT DATE: 20170202
